FAERS Safety Report 21480468 (Version 1)
Quarter: 2022Q4

REPORT INFORMATION
  Report Type: Report from Study
  Country: SK (occurrence: SK)
  Receive Date: 20221019
  Receipt Date: 20221019
  Transmission Date: 20230113
  Serious: Yes (Death, Other)
  Sender: FDA-Public Use
  Company Number: SK-TAKEDA-2022TUS075459

PATIENT
  Age: 48 Year
  Sex: Male
  Weight: 74 kg

DRUGS (1)
  1. HUMAN IMMUNOGLOBULIN G\HYALURONIDASE RECOMBINANT HUMAN [Suspect]
     Active Substance: HUMAN IMMUNOGLOBULIN G\HYALURONIDASE RECOMBINANT HUMAN
     Indication: Secondary immunodeficiency
     Dosage: UNK
     Route: 065
     Dates: start: 2019, end: 20220801

REACTIONS (1)
  - Ruptured cerebral aneurysm [Fatal]

NARRATIVE: CASE EVENT DATE: 20220801
